FAERS Safety Report 9394826 (Version 2)
Quarter: 2013Q3

REPORT INFORMATION
  Report Type: Report from Study
  Country: FR (occurrence: FR)
  Receive Date: 20130711
  Receipt Date: 20130814
  Transmission Date: 20140515
  Serious: Yes (Hospitalization)
  Sender: FDA-Public Use
  Company Number: FR-BAYER-2013-078426

PATIENT
  Age: 81 Year
  Sex: Male
  Weight: 48 kg

DRUGS (8)
  1. REGORAFENIB [Suspect]
     Indication: GASTROINTESTINAL STROMAL TUMOUR
     Dosage: DAILY DOSE 160 MG
     Route: 048
     Dates: start: 20130610, end: 201306
  2. REGORAFENIB [Suspect]
     Indication: GASTROINTESTINAL STROMAL TUMOUR
     Dosage: 160 MG
     Route: 048
     Dates: start: 201306, end: 20130618
  3. APROVEL [Concomitant]
     Dosage: UNK
     Route: 048
     Dates: start: 20120925
  4. LASILIX [Concomitant]
     Dosage: UNK
     Route: 048
     Dates: start: 20120925
  5. LEVOTHYROX [Concomitant]
     Dosage: UNK
     Route: 048
     Dates: start: 20120925
  6. SOLUPRED [PREDNISOLONE] [Concomitant]
     Dosage: DAILY DOSE 3 DF
     Dates: start: 20130510
  7. MOPRAL [Concomitant]
     Dosage: UNK
     Route: 048
     Dates: start: 20130510
  8. TRIOFAN [Concomitant]
     Indication: DIARRHOEA
     Dosage: DAILY DOSE 2 DF
     Route: 048
     Dates: start: 20130619, end: 20130621

REACTIONS (6)
  - Rash [None]
  - Diarrhoea [None]
  - Asthenia [None]
  - Toxic skin eruption [Recovered/Resolved]
  - Renal failure [Recovered/Resolved]
  - General physical health deterioration [Recovered/Resolved]
